FAERS Safety Report 6784714-4 (Version None)
Quarter: 2010Q2

REPORT INFORMATION
  Report Type: 
  Country: None (occurrence: None)
  Receive Date: 20100622
  Receipt Date: 20100618
  Transmission Date: 20101027
  Serious: Yes (Hospitalization, Other)
  Sender: FDA-Public Use
  Company Number: DE-EISAI INC.-E2090-01195-SPO-DE

PATIENT
  Sex: Female
  Weight: 77.1 kg

DRUGS (3)
  1. ZONEGRAN [Suspect]
     Route: 048
     Dates: start: 20070101
  2. SIMVASTATIN [Concomitant]
     Route: 048
  3. HYDROCHLOROTHIAZIDE [Concomitant]
     Route: 048
     Dates: start: 20100608

REACTIONS (2)
  - NEPHROLITHIASIS [None]
  - RENAL TUBULAR ACIDOSIS [None]
